FAERS Safety Report 16687494 (Version 2)
Quarter: 2020Q2

REPORT INFORMATION
  Report Type: Spontaneous
  Country: US (occurrence: US)
  Receive Date: 20190809
  Receipt Date: 20200520
  Transmission Date: 20200713
  Serious: Yes (Death, Other)
  Sender: FDA-Public Use
  Company Number: US-PFIZER INC-2019341628

PATIENT
  Sex: Female

DRUGS (1)
  1. VIAGRA [Suspect]
     Active Substance: SILDENAFIL CITRATE
     Indication: NERVE INJURY
     Dosage: UNK

REACTIONS (4)
  - Product use issue [Unknown]
  - Off label use [Unknown]
  - Drug effective for unapproved indication [Unknown]
  - Death [Fatal]
